FAERS Safety Report 13885358 (Version 1)
Quarter: 2017Q3

REPORT INFORMATION
  Report Type: Spontaneous
  Country: AT (occurrence: AT)
  Receive Date: 20170821
  Receipt Date: 20170821
  Transmission Date: 20171127
  Serious: Yes (Life-Threatening)
  Sender: FDA-Public Use
  Company Number: AT-TEVA-797220ISR

PATIENT
  Age: 59 Year
  Sex: Male
  Weight: 90 kg

DRUGS (18)
  1. VENDAL 10MG - AMPULLEN [Suspect]
     Active Substance: MORPHINE HYDROCHLORIDE
     Indication: PAIN
     Dosage: 0.5 TILL 2 AMP AS NEEDED IN CASE OF PAIN PEAKS
  2. LOVENOX 4.000 IE (40MG)/0.4 ML INJEKTIONSL?SUNG IN EINER FERTIGSPRITZE [Concomitant]
     Indication: PROPHYLAXIS
     Dosage: 40 MILLIGRAM DAILY; 0-0-1 (ONE IN THE EVENING)
     Dates: start: 20170429
  3. DIBONDRIN- AMPULLEN [Suspect]
     Active Substance: DIPHENHYDRAMINE HYDROCHLORIDE
     Indication: HYPERSENSITIVITY
     Dosage: 2 DOSAGE FORMS DAILY; 1-0-1 (ONE IN THE MORNING/EVENING)
     Route: 042
     Dates: start: 20170626, end: 20170717
  4. CEFEPIM-MIP 2G PULVER ZUR HERSTELLUNG EINER INJEKTIONS-/INFUSIONSL?SUN [Suspect]
     Active Substance: CEFEPIME HYDROCHLORIDE
     Indication: C-REACTIVE PROTEIN INCREASED
     Dosage: 3 DOSAGE FORMS DAILY; 1-1-1 IV (ONE IN THE MORNING/EVENING AND AT NOON)
     Route: 042
     Dates: start: 20170707, end: 20170717
  5. APREDNISLON 5MG - TABLETTEN [Suspect]
     Active Substance: PREDNISOLONE
     Indication: CHRONIC OBSTRUCTIVE PULMONARY DISEASE
     Dosage: 5 MILLIGRAM DAILY; 1-0-0 (ONE IN THE MORNING)
     Dates: start: 20170707, end: 20170717
  6. BRICANYL 0.5MG - AMPULLEN [Concomitant]
     Indication: RESPIRATORY DISTRESS
     Dosage: .25 MILLIGRAM DAILY; 1/2 VIAL -0-0 (HALF IN THE MORNING)
     Route: 042
     Dates: start: 20170704
  7. NEXIUM 40MG - MAGENSAFTRESISTENTE TABLETTE [Concomitant]
     Indication: PROPHYLAXIS AGAINST GASTROINTESTINAL ULCER
     Dosage: 80 MILLIGRAM DAILY; 1 -0-1 (ONE IN THE MORNING/EVENING)
  8. ADVANTAN 0,1% - CREME [Concomitant]
     Indication: HYPERSENSITIVITY
     Dosage: 3XDAILY
  9. FENTORON 25?G/H - TRANSDERMALES MATRIXPFLASTER [Suspect]
     Active Substance: FENTANYL
     Indication: PAIN
     Dosage: EVERY 3 DAYS
     Dates: start: 20170531, end: 20170716
  10. TRITTICO RETARD 150MG - TABLETTEN [Suspect]
     Active Substance: TRAZODONE HYDROCHLORIDE
     Indication: DEPRESSION
     Dosage: 150 MILLIGRAM DAILY; 0-0-1 (ONE IN THE EVENING)
     Dates: start: 20170519, end: 20170717
  11. CIPRALEX [Suspect]
     Active Substance: ESCITALOPRAM OXALATE
     Indication: DEPRESSION
     Dosage: 10 MILLIGRAM DAILY; 1-0-0 (ONE IN THE MORNING)
  12. PULMICORT 0,5 MG - SUSPENSION ZUR INHALATION [Concomitant]
     Indication: CHRONIC OBSTRUCTIVE PULMONARY DISEASE
     Dosage: 1 MILLIGRAM DAILY; 1-0-1 (ONE IN THE MORNING/EVENING)
     Dates: start: 20170501
  13. SPIRONO GENERICON 50MG TABLETTEN [Concomitant]
     Indication: POLYURIA
     Dosage: 25 MILLIGRAM DAILY; 1/2-0-0 (HALF IN THE MORNING)
     Dates: start: 20170605
  14. LYRICA 75MG HARTKAPSELN [Concomitant]
     Indication: INTENSIVE CARE UNIT ACQUIRED WEAKNESS
     Dosage: 150 MILLIGRAM DAILY; 1-0-1 (ONE IN THE MORNING/EVENING)
     Dates: start: 20170622
  15. LASIX 40MG TABLETTEN [Concomitant]
     Indication: POLYURIA
     Dosage: 40 MILLIGRAM DAILY; 0-1-0 (ONE AT NOON)
  16. SUPRARENIN [Suspect]
     Active Substance: EPINEPHRINE
     Indication: PROPHYLAXIS AGAINST BRONCHOSPASM
     Dosage: 2 DOSAGE FORMS DAILY; 1-0-0(ONE IN THE MORNING)INHALATIVE 2MG
     Dates: start: 20170704, end: 20170717
  17. BERODUALIN - INHALATIONSL?SUNG [Concomitant]
     Indication: CHRONIC OBSTRUCTIVE PULMONARY DISEASE
     Dosage: 40X10 DROPS
     Dates: start: 20170623
  18. MOVICOL BEUTEL [Concomitant]
     Indication: CONSTIPATION
     Dosage: 1 DOSAGE FORMS DAILY; 0-1-0 ( ONE AT NOON)

REACTIONS (2)
  - Seizure [Recovered/Resolved]
  - Myoclonus [Recovered/Resolved]

NARRATIVE: CASE EVENT DATE: 20170717
